FAERS Safety Report 10021026 (Version 1)
Quarter: 2014Q1

REPORT INFORMATION
  Report Type: Spontaneous
  Country: CA (occurrence: CA)
  Receive Date: 20140319
  Receipt Date: 20140319
  Transmission Date: 20141002
  Serious: Yes (Hospitalization, Other)
  Sender: FDA-Public Use
  Company Number: CA-ASTELLAS-2014US002561

PATIENT
  Age: 39 Year
  Sex: Female

DRUGS (1)
  1. PROGRAF [Suspect]
     Indication: LIVER TRANSPLANT
     Dosage: 0.5 MG, UID/QD
     Route: 048
     Dates: start: 1999

REACTIONS (7)
  - Road traffic accident [Unknown]
  - Hepatic cirrhosis [Unknown]
  - Drug intolerance [Unknown]
  - Concussion [Unknown]
  - Rib fracture [Unknown]
  - Upper limb fracture [Unknown]
  - Laryngitis [Unknown]
